FAERS Safety Report 9342066 (Version 3)
Quarter: 2013Q2

REPORT INFORMATION
  Report Type: Report from Study
  Country: BR (occurrence: BR)
  Receive Date: 20130611
  Receipt Date: 20130617
  Transmission Date: 20140414
  Serious: Yes (Life-Threatening, Hospitalization, Other)
  Sender: FDA-Public Use
  Company Number: PHHY2013BR058118

PATIENT
  Age: 77 Year
  Sex: Male
  Weight: 85 kg

DRUGS (16)
  1. EXELON PATCH [Suspect]
     Indication: CONFUSIONAL STATE
     Dosage: 4.6 MG, DAILY
     Route: 062
  2. PURAN T4 [Concomitant]
     Dosage: UNK UKN, UNK
  3. GLUCOFORMIN [Concomitant]
     Indication: DIABETES MELLITUS
     Dosage: UNK UKN, UNK
  4. LANTUS [Concomitant]
     Dosage: UNK UKN, UNK
  5. INSULIN [Concomitant]
     Dosage: UNK UKN, UNK
  6. PANTOPRAZOLE [Concomitant]
     Indication: GASTROINTESTINAL DISORDER
     Dosage: UNK UKN, UNK
  7. DIGOXIN [Concomitant]
     Indication: CARDIAC DISORDER
     Dosage: UNK UKN, UNK
  8. ATENOLOL [Concomitant]
     Indication: BLOOD PRESSURE ABNORMAL
     Dosage: UNK UKN, UNK
  9. B-VITAMINS [Concomitant]
     Indication: BLOOD PRESSURE ABNORMAL
     Dosage: UNK UKN, UNK
  10. ADDERA D3 [Concomitant]
     Dosage: UNK UKN, UNK
  11. SECOTEX [Concomitant]
     Indication: PROSTATIC DISORDER
     Dosage: UNK UKN, UNK
  12. MOTILIN [Concomitant]
     Dosage: UNK UKN, UNK
  13. BUFFERIN CARDIO [Concomitant]
     Indication: BLOOD VISCOSITY INCREASED
     Dosage: UNK UKN, UNK
  14. SLOW K [Concomitant]
     Dosage: UNK UKN, UNK
  15. ALOGLUTAMOL [Concomitant]
     Indication: GLAUCOMA
     Dosage: UNK UKN, UNK
  16. METICORTEN [Concomitant]
     Indication: RENAL DISORDER
     Dosage: UNK UKN, UNK

REACTIONS (16)
  - Pneumonia [Unknown]
  - Malaise [Unknown]
  - Convulsion [Unknown]
  - Cerebrovascular accident [Unknown]
  - Hypothalamo-pituitary disorder [Unknown]
  - General physical health deterioration [Unknown]
  - Infection [Unknown]
  - Nervous system disorder [Unknown]
  - Aphasia [Unknown]
  - Feeling abnormal [Unknown]
  - Hormone level abnormal [Unknown]
  - Immunodeficiency [Unknown]
  - Sedation [Unknown]
  - Weight decreased [Unknown]
  - Confusional state [Unknown]
  - Memory impairment [Unknown]
